FAERS Safety Report 18065549 (Version 3)
Quarter: 2020Q3

REPORT INFORMATION
  Report Type: Spontaneous
  Country: IT (occurrence: IT)
  Receive Date: 20200724
  Receipt Date: 20200831
  Transmission Date: 20201103
  Serious: Yes (Hospitalization)
  Sender: FDA-Public Use
  Company Number: NVSC2020IT202403

PATIENT
  Age: 66 Year
  Sex: Female

DRUGS (8)
  1. LORMETAZEPAM [Suspect]
     Active Substance: LORMETAZEPAM
     Indication: DRUG ABUSE
     Dosage: 50 MG (TOTAL)
     Route: 048
     Dates: start: 20200603, end: 20200603
  2. TRIMIPRAMINE [Suspect]
     Active Substance: TRIMIPRAMINE
     Indication: DRUG ABUSE
     Dosage: 800 MG (TOTAL)
     Route: 048
     Dates: start: 20200603, end: 20200603
  3. CLONAZEPAM. [Suspect]
     Active Substance: CLONAZEPAM
     Indication: DRUG ABUSE
     Dosage: 25 MG (TOTAL)
     Route: 048
     Dates: start: 20200603, end: 20200603
  4. LORAZEPAM. [Suspect]
     Active Substance: LORAZEPAM
     Indication: DRUG ABUSE
     Dosage: 100 MG (TOTAL)
     Route: 048
     Dates: start: 20200603, end: 20200603
  5. FLURAZEPAM MONOHYDROCHLORIDE [Suspect]
     Active Substance: FLURAZEPAM MONOHYDROCHLORIDE
     Indication: DRUG ABUSE
     Dosage: 270 MG (TOTAL)
     Route: 048
     Dates: start: 20200603, end: 20200603
  6. QUETIAPINE FUMARATE. [Suspect]
     Active Substance: QUETIAPINE FUMARATE
     Indication: DRUG ABUSE
     Dosage: 6900 MG (TOTAL)
     Route: 048
     Dates: start: 20200603, end: 20200603
  7. LITHIUM. [Suspect]
     Active Substance: LITHIUM
     Indication: DRUG ABUSE
     Dosage: 41.5 MG (TOTAL)
     Route: 048
     Dates: start: 20200603, end: 20200603
  8. ABILIFY [Concomitant]
     Active Substance: ARIPIPRAZOLE
     Indication: BIPOLAR DISORDER
     Dosage: 10 MG
     Route: 048

REACTIONS (3)
  - Drug abuse [Recovering/Resolving]
  - Depressed level of consciousness [Recovering/Resolving]
  - Loss of consciousness [Recovering/Resolving]

NARRATIVE: CASE EVENT DATE: 20200603
